FAERS Safety Report 23859259 (Version 1)
Quarter: 2024Q2

REPORT INFORMATION
  Report Type: Spontaneous
  Country: TN (occurrence: TN)
  Receive Date: 20240515
  Receipt Date: 20240515
  Transmission Date: 20240715
  Serious: Yes (Other)
  Sender: FDA-Public Use
  Company Number: TN-MLMSERVICE-20240508-PI052032-00058-1

PATIENT
  Age: 68 Year
  Sex: Female

DRUGS (2)
  1. ATROPINE SULFATE [Suspect]
     Active Substance: ATROPINE SULFATE
     Indication: Uveitis
     Dosage: 2-4 DROPS
     Route: 065
  2. DEXAMETHASONE\FRAMYCETIN [Concomitant]
     Active Substance: DEXAMETHASONE\FRAMYCETIN
     Indication: Uveitis
     Route: 065

REACTIONS (3)
  - Type IV hypersensitivity reaction [Recovered/Resolved]
  - Periorbital oedema [Recovered/Resolved]
  - Dermatitis allergic [Recovered/Resolved]
